FAERS Safety Report 10177440 (Version 1)
Quarter: 2014Q2

REPORT INFORMATION
  Report Type: Spontaneous
  Country: CN (occurrence: CN)
  Receive Date: 20140516
  Receipt Date: 20140516
  Transmission Date: 20141212
  Serious: Yes (Other)
  Sender: FDA-Public Use
  Company Number: PHHY2014CN059350

PATIENT
  Age: 49 Year
  Sex: Female

DRUGS (3)
  1. EXFORGE [Suspect]
     Indication: HYPERTENSION
     Dosage: 5 MG/DAY
     Route: 048
     Dates: start: 2007
  2. BETALOC ZOK ^ASTRA^ [Suspect]
     Indication: HYPERTENSION
     Dosage: 50 MG, BID
     Route: 048
     Dates: start: 2007
  3. BETALOC ZOK ^ASTRA^ [Suspect]
     Dosage: 47.5 MG, BID
     Route: 048
     Dates: end: 20130219

REACTIONS (3)
  - Asthma [Recovering/Resolving]
  - Anaphylactoid reaction [Unknown]
  - Pyrexia [Recovered/Resolved]
